FAERS Safety Report 10023550 (Version 1)
Quarter: 2014Q1

REPORT INFORMATION
  Report Type: Spontaneous
  Country: US (occurrence: None)
  Receive Date: 20140319
  Receipt Date: 20140319
  Transmission Date: 20141002
  Serious: No
  Sender: FDA-Public Use
  Company Number: None

PATIENT
  Age: 37 Year
  Sex: Female
  Weight: 97.52 kg

DRUGS (5)
  1. CYMBALTA [Suspect]
     Indication: FIBROMYALGIA
     Route: 048
     Dates: start: 20110301, end: 20130901
  2. OMEGA 3 [Concomitant]
  3. MAGNESIUM [Concomitant]
  4. PMS SUPPORT [Concomitant]
  5. PROBIOTIC [Concomitant]

REACTIONS (8)
  - Vertigo [None]
  - Motion sickness [None]
  - Nausea [None]
  - Influenza like illness [None]
  - Anxiety [None]
  - Depression [None]
  - Suicidal ideation [None]
  - Paraesthesia [None]
